FAERS Safety Report 6235504-2 (Version None)
Quarter: 2009Q2

REPORT INFORMATION
  Report Type: 
  Country: None (occurrence: None)
  Receive Date: 20090618
  Receipt Date: 20080611
  Transmission Date: 20091009
  Serious: No
  Sender: FDA-Public Use
  Company Number: US-ASTRAZENECA-2008UW11700

PATIENT
  Age: 43 Year
  Sex: Female
  Weight: 72.6 kg

DRUGS (3)
  1. RHINOCORT [Suspect]
     Indication: HYPERSENSITIVITY
     Dosage: 1 SPRAY
     Route: 045
  2. VICODIN [Concomitant]
  3. BIRTH CONTROL [Concomitant]

REACTIONS (3)
  - EYE SWELLING [None]
  - MEDICATION ERROR [None]
  - PAIN [None]
